FAERS Safety Report 6104956-0 (Version None)
Quarter: 2009Q1

REPORT INFORMATION
  Report Type: 
  Country: None (occurrence: None)
  Receive Date: 20090306
  Receipt Date: 20090225
  Transmission Date: 20090719
  Serious: Yes (Hospitalization, Other)
  Sender: FDA-Public Use
  Company Number: US-AMGEN-QUU335668

PATIENT
  Sex: Female

DRUGS (3)
  1. ENBREL [Suspect]
     Indication: RHEUMATOID ARTHRITIS
     Route: 058
     Dates: start: 20030101
  2. ENBREL [Suspect]
     Indication: PSORIATIC ARTHROPATHY
  3. METHOTREXATE [Concomitant]
     Route: 048

REACTIONS (7)
  - COUGH [None]
  - DIABETES MELLITUS [None]
  - FATIGUE [None]
  - PULMONARY CONGESTION [None]
  - PULMONARY EMBOLISM [None]
  - RESPIRATORY TRACT INFECTION [None]
  - RHINORRHOEA [None]
